FAERS Safety Report 8133680-8 (Version None)
Quarter: 2012Q1

REPORT INFORMATION
  Report Type: 
  Country: None (occurrence: None)
  Receive Date: 20120213
  Receipt Date: 20120203
  Transmission Date: 20120608
  Serious: Yes (Hospitalization)
  Sender: FDA-Public Use
  Company Number: CA-ABBOTT-12P-028-0893448-00

PATIENT
  Sex: Female
  Weight: 57 kg

DRUGS (1)
  1. HUMIRA [Suspect]
     Indication: ARTHRITIS
     Route: 058
     Dates: start: 20111021, end: 20111115

REACTIONS (13)
  - ADRENAL INSUFFICIENCY [None]
  - HYPOKALAEMIA [None]
  - ANAEMIA [None]
  - HYPERHIDROSIS [None]
  - ORTHOSTATIC HYPOTENSION [None]
  - DIABETES MELLITUS [None]
  - HYPERTHERMIA [None]
  - INFLAMMATION [None]
  - BLOOD PRESSURE DECREASED [None]
  - BACK PAIN [None]
  - LEUKOCYTOSIS [None]
  - FATIGUE [None]
  - HYPOGLYCAEMIA [None]
